FAERS Safety Report 5238222-2 (Version None)
Quarter: 2007Q1

REPORT INFORMATION
  Report Type: 
  Country: None (occurrence: None)
  Receive Date: 20061208
  Receipt Date: 20050718
  Transmission Date: 20070707
  Serious: Yes (Other)
  Sender: FDA-Public Use
  Company Number: 2005UW07906

PATIENT
  Age: 49 Year
  Sex: Female
  Weight: 83.4619 kg

DRUGS (1)
  1. CRESTOR [Suspect]
     Indication: HYPERLIPIDAEMIA
     Dosage: 10 MG DAILY PO
     Route: 048
     Dates: start: 20040907, end: 20050501

REACTIONS (2)
  - MYALGIA [None]
  - PYREXIA [None]
